FAERS Safety Report 8987587 (Version 1)
Quarter: 2012Q4

REPORT INFORMATION
  Report Type: 
  Country: BE (occurrence: BE)
  Receive Date: 20121227
  Receipt Date: 20121227
  Transmission Date: 20130627
  Serious: Yes (Hospitalization)
  Sender: FDA-Public Use
  Company Number: BE-PFIZER INC-2012322835

PATIENT
  Age: 77 Year
  Sex: Male
  Weight: 90 kg

DRUGS (3)
  1. ZYVOXID [Suspect]
     Indication: OSTEOMYELITIS
     Dosage: 600 mg, 1x/day
     Route: 048
     Dates: start: 20120103, end: 20120119
  2. ZYVOXID [Suspect]
     Indication: MRSA COLONIZATION
  3. LOSFERRON [Concomitant]
     Indication: ANEMIA
     Dosage: 695 mg, 1x/day
     Route: 048
     Dates: start: 20120106

REACTIONS (4)
  - Petechiae [Recovered/Resolved]
  - Leukocytoclastic vasculitis [Recovered/Resolved]
  - Talipes [Recovered/Resolved]
  - Epigastric discomfort [Recovered/Resolved]
